FAERS Safety Report 20408894 (Version 3)
Quarter: 2022Q1

REPORT INFORMATION
  Report Type: Report from Study
  Country: US (occurrence: US)
  Receive Date: 20220201
  Receipt Date: 20220221
  Transmission Date: 20220423
  Serious: Yes (Death, Hospitalization, Other)
  Sender: FDA-Public Use
  Company Number: US-GILEAD-2022-0567897

PATIENT
  Age: 74 Year
  Sex: Female

DRUGS (4)
  1. AMBRISENTAN [Suspect]
     Active Substance: AMBRISENTAN
     Indication: Pulmonary arterial hypertension
     Dosage: 5 MG, QD
     Route: 048
     Dates: start: 20220106
  2. AMBRISENTAN [Suspect]
     Active Substance: AMBRISENTAN
     Dosage: 10 MG, QD
     Route: 065
     Dates: start: 20220106
  3. ORENITRAM [Concomitant]
     Active Substance: TREPROSTINIL
  4. SILDENAFIL [Concomitant]
     Active Substance: SILDENAFIL

REACTIONS (8)
  - Cardiac failure [Fatal]
  - Renal failure [Fatal]
  - Hydronephrosis [Unknown]
  - Abdominal distension [Unknown]
  - Dyspnoea [Unknown]
  - Dysuria [Unknown]
  - Abdominal pain upper [Unknown]
  - Asthenia [Unknown]

NARRATIVE: CASE EVENT DATE: 20220121
